FAERS Safety Report 5413689-5 (Version None)
Quarter: 2007Q3

REPORT INFORMATION
  Report Type: 
  Country: None (occurrence: None)
  Receive Date: 20070814
  Receipt Date: 20070808
  Transmission Date: 20080115
  Serious: Yes (Hospitalization)
  Sender: FDA-Public Use
  Company Number: A0662551A

PATIENT
  Age: 56 Year
  Sex: Male
  Weight: 69.5 kg

DRUGS (7)
  1. AVANDIA [Suspect]
     Indication: DRUG USE FOR UNKNOWN INDICATION
     Dosage: 4MG PER DAY
     Route: 048
     Dates: start: 20050101
  2. METFORMIN HCL [Concomitant]
     Dosage: 1000MG TWICE PER DAY
     Route: 048
     Dates: start: 20050721
  3. LIPITOR [Concomitant]
     Dosage: 20MG TWICE PER DAY
     Route: 048
  4. UNSPECIFIED MEDICATION [Concomitant]
  5. ALTACE [Concomitant]
     Dosage: 10MG PER DAY
     Route: 048
     Dates: start: 20060615
  6. ALLOPURINOL [Concomitant]
     Dates: start: 20070122
  7. INDOCIN [Concomitant]
     Dosage: 25MG THREE TIMES PER DAY
     Dates: start: 20070122

REACTIONS (9)
  - ASTHENIA [None]
  - BLOOD GLUCOSE INCREASED [None]
  - CARDIAC FAILURE CONGESTIVE [None]
  - CHILLS [None]
  - COUGH [None]
  - DYSPNOEA [None]
  - OEDEMA [None]
  - PLEURAL EFFUSION [None]
  - PYREXIA [None]
